FAERS Safety Report 6631697-3 (Version None)
Quarter: 2010Q1

REPORT INFORMATION
  Report Type: 
  Country: None (occurrence: None)
  Receive Date: 20100312
  Receipt Date: 20100310
  Transmission Date: 20100710
  Serious: Yes (Death, Hospitalization, Other)
  Sender: FDA-Public Use
  Company Number: PHHY2010GB08190

PATIENT
  Sex: Male

DRUGS (1)
  1. CLOZARIL [Suspect]
     Indication: SCHIZOPHRENIA
     Dosage: UNK
     Route: 048
     Dates: start: 20001124

REACTIONS (6)
  - CARDIAC VALVE DISEASE [None]
  - INTESTINAL PERFORATION [None]
  - ISCHAEMIA [None]
  - RENAL IMPAIRMENT [None]
  - SEPSIS [None]
  - SURGERY [None]
